FAERS Safety Report 8844643 (Version 1)
Quarter: 2012Q4

REPORT INFORMATION
  Report Type: Spontaneous
  Country: US (occurrence: None)
  Receive Date: 20121012
  Receipt Date: 20121012
  Transmission Date: 20130627
  Serious: Yes (Hospitalization)
  Sender: FDA-Public Use
  Company Number: 2010004082

PATIENT
  Age: 72 Year
  Sex: Female

DRUGS (1)
  1. TARCEVA [Suspect]
     Indication: LUNG CARCINOMA CELL TYPE UNSPECIFIED STAGE 0
     Dosage: 25 mg, IUD/QD, Oral
     Route: 048
     Dates: start: 20100519

REACTIONS (2)
  - Incorrect dose administered [None]
  - Alopecia [None]
